FAERS Safety Report 18302279 (Version 1)
Quarter: 2020Q3

REPORT INFORMATION
  Report Type: Spontaneous
  Country: US (occurrence: US)
  Receive Date: 20200923
  Receipt Date: 20200923
  Transmission Date: 20201103
  Serious: No
  Sender: FDA-Public Use
  Company Number: US-VERTEX PHARMACEUTICALS-2020-018643

PATIENT
  Sex: Female
  Weight: 50 kg

DRUGS (2)
  1. TRIKAFTA [Suspect]
     Active Substance: ELEXACAFTOR\IVACAFTOR\TEZACAFTOR
     Indication: CYSTIC FIBROSIS
     Dosage: 2 TAB(ELEXA 100MG/ TEZA 50 MG/IVA 75 MG) IN THE AM AND 1 TAB (IVA 150 MG) IN THE PM, BID
     Route: 048
  2. TRIKAFTA [Suspect]
     Active Substance: ELEXACAFTOR\IVACAFTOR\TEZACAFTOR
     Dosage: 1 TAB (IVA 150 MG) IN THE AM AND 2 TAB (ELEXA 100 MG/TEZA50 MG/IVA 5 MG)IN THE PM, BID
     Route: 048

REACTIONS (1)
  - Nausea [Recovered/Resolved]
